FAERS Safety Report 9039546 (Version 1)
Quarter: 2013Q1

REPORT INFORMATION
  Report Type: Spontaneous
  Country: US (occurrence: US)
  Receive Date: 20130129
  Receipt Date: 20130129
  Transmission Date: 20140127
  Serious: Yes (Hospitalization)
  Sender: FDA-Public Use
  Company Number: US-009507513-1301USA012172

PATIENT
  Sex: Female
  Weight: 81.18 kg

DRUGS (1)
  1. NUVARING [Suspect]
     Indication: CONTRACEPTION
     Dosage: UNK
     Route: 067
     Dates: start: 2009, end: 200907

REACTIONS (4)
  - Deep vein thrombosis [Recovering/Resolving]
  - Pain in extremity [Recovered/Resolved]
  - Headache [Unknown]
  - Ligament sprain [Unknown]
